FAERS Safety Report 24252790 (Version 1)
Quarter: 2024Q3

REPORT INFORMATION
  Report Type: Report from Study
  Country: CA (occurrence: None)
  Receive Date: 20240827
  Receipt Date: 20240827
  Transmission Date: 20241016
  Serious: Yes (Other)
  Sender: ORION
  Company Number: CA-PFIZER INC-2019443374

PATIENT
  Age: 40 Year
  Sex: Male

DRUGS (16)
  1. METHOTREXATE [Suspect]
     Active Substance: METHOTREXATE
     Indication: Product used for unknown indication
  2. BACLOFEN [Suspect]
     Active Substance: BACLOFEN
     Indication: Product used for unknown indication
  3. FOLIC ACID [Suspect]
     Active Substance: FOLIC ACID
     Indication: Product used for unknown indication
  4. RABEPRAZOLE [Suspect]
     Active Substance: RABEPRAZOLE
     Indication: Product used for unknown indication
  5. COSENTYX [Suspect]
     Active Substance: SECUKINUMAB
     Indication: Psoriatic arthropathy
  6. COSENTYX [Suspect]
     Active Substance: SECUKINUMAB
     Indication: Psoriasis
  7. COSENTYX [Suspect]
     Active Substance: SECUKINUMAB
     Indication: Ankylosing spondylitis
  8. COSENTYX [Suspect]
     Active Substance: SECUKINUMAB
  9. COSENTYX [Suspect]
     Active Substance: SECUKINUMAB
  10. DICYCLOMINE HYDROCHLORIDE [Concomitant]
     Active Substance: DICYCLOMINE HYDROCHLORIDE
     Dosage: ONGOING
  11. SIMETHICONE (DIMETHICONE) [Concomitant]
     Active Substance: DIMETHICONE
     Dosage: ONGOING
  12. DILAUDID [Concomitant]
     Active Substance: HYDROMORPHONE HYDROCHLORIDE
     Dosage: ONGOING
  13. ENBREL [Concomitant]
     Active Substance: BENZYL ALCOHOL\ETANERCEPT
     Dosage: ONGOING
  14. MS CONTIN [Concomitant]
     Active Substance: MORPHINE SULFATE
     Dosage: ONGOING
  15. OTEZLA [Concomitant]
     Active Substance: APREMILAST
     Dosage: ONGOING
  16. STELARA [Concomitant]
     Active Substance: USTEKINUMAB
     Dosage: ONGOING

REACTIONS (2)
  - Fatigue [Recovered/Resolved]
  - Hypertension [Recovered/Resolved]
